FAERS Safety Report 8974075 (Version 1)
Quarter: 2012Q4

REPORT INFORMATION
  Report Type: Report from Study
  Country: US (occurrence: US)
  Receive Date: 20121218
  Receipt Date: 20121218
  Transmission Date: 20130627
  Serious: Yes (Other)
  Sender: FDA-Public Use
  Company Number: US-ELI_LILLY_AND_COMPANY-US201212002517

PATIENT
  Age: 25 Year
  Sex: Male

DRUGS (54)
  1. OLANZAPINE LONG-ACTING IM [Suspect]
     Indication: SCHIZOPHRENIA
     Dosage: 300 mg, UNK
     Route: 030
     Dates: start: 20100623
  2. OLANZAPINE LONG-ACTING IM [Suspect]
     Dosage: 300 mg, UNK
     Route: 030
     Dates: start: 20100707
  3. OLANZAPINE LONG-ACTING IM [Suspect]
     Dosage: 300 mg, UNK
     Route: 030
     Dates: start: 20100721
  4. OLANZAPINE LONG-ACTING IM [Suspect]
     Dosage: 300 mg, UNK
     Route: 030
     Dates: start: 20100804
  5. OLANZAPINE LONG-ACTING IM [Suspect]
     Dosage: 300 mg, UNK
     Route: 030
     Dates: start: 20100818
  6. OLANZAPINE LONG-ACTING IM [Suspect]
     Dosage: 300 mg, UNK
     Route: 030
     Dates: start: 20100915
  7. OLANZAPINE LONG-ACTING IM [Suspect]
     Dosage: 300 mg, UNK
     Route: 030
     Dates: start: 20100929
  8. OLANZAPINE LONG-ACTING IM [Suspect]
     Dosage: 300 mg, UNK
     Route: 030
     Dates: start: 20101013
  9. OLANZAPINE LONG-ACTING IM [Suspect]
     Dosage: 300 mg, UNK
     Route: 030
     Dates: start: 20101027
  10. OLANZAPINE LONG-ACTING IM [Suspect]
     Dosage: 300 mg, UNK
     Route: 030
     Dates: start: 20101110
  11. OLANZAPINE LONG-ACTING IM [Suspect]
     Dosage: 300 mg, UNK
     Route: 030
     Dates: start: 20101124
  12. OLANZAPINE LONG-ACTING IM [Suspect]
     Dosage: 300 mg, UNK
     Route: 030
     Dates: start: 20101208
  13. OLANZAPINE LONG-ACTING IM [Suspect]
     Dosage: 405 mg, UNK
     Route: 030
     Dates: start: 20101222
  14. OLANZAPINE LONG-ACTING IM [Suspect]
     Dosage: 300 mg, UNK
     Route: 058
     Dates: start: 20110119
  15. OLANZAPINE LONG-ACTING IM [Suspect]
     Dosage: 300 mg, UNK
     Route: 030
     Dates: start: 20110202
  16. OLANZAPINE LONG-ACTING IM [Suspect]
     Dosage: 300 mg, UNK
     Route: 030
     Dates: start: 20110216
  17. OLANZAPINE LONG-ACTING IM [Suspect]
     Dosage: 300 mg, UNK
     Route: 030
     Dates: start: 20110302
  18. OLANZAPINE LONG-ACTING IM [Suspect]
     Dosage: 300 mg, UNK
     Route: 030
     Dates: start: 20110316
  19. OLANZAPINE LONG-ACTING IM [Suspect]
     Dosage: 300 mg, UNK
     Route: 030
     Dates: start: 20110330
  20. OLANZAPINE LONG-ACTING IM [Suspect]
     Dosage: 300 mg, UNK
     Route: 030
     Dates: start: 20110413
  21. OLANZAPINE LONG-ACTING IM [Suspect]
     Dosage: 300 mg, UNK
     Route: 030
     Dates: start: 20110427
  22. OLANZAPINE LONG-ACTING IM [Suspect]
     Dosage: 300 mg, UNK
     Route: 030
     Dates: start: 20110511
  23. OLANZAPINE LONG-ACTING IM [Suspect]
     Dosage: 300 mg, UNK
     Route: 030
     Dates: start: 20110525
  24. OLANZAPINE LONG-ACTING IM [Suspect]
     Dosage: 300 mg, UNK
     Route: 030
     Dates: start: 20110609
  25. OLANZAPINE LONG-ACTING IM [Suspect]
     Dosage: 300 mg, UNK
     Route: 030
     Dates: start: 20110623
  26. OLANZAPINE LONG-ACTING IM [Suspect]
     Dosage: 300 mg, UNK
     Route: 030
     Dates: start: 20110707
  27. OLANZAPINE LONG-ACTING IM [Suspect]
     Dosage: 300 mg, UNK
     Route: 030
     Dates: start: 20110721
  28. OLANZAPINE LONG-ACTING IM [Suspect]
     Dosage: 300 mg, UNK
     Route: 030
     Dates: start: 20110811
  29. OLANZAPINE LONG-ACTING IM [Suspect]
     Dosage: 300 mg, UNK
     Route: 030
     Dates: start: 20110825
  30. OLANZAPINE LONG-ACTING IM [Suspect]
     Dosage: 300 mg, UNK
     Route: 030
     Dates: start: 20110915
  31. OLANZAPINE LONG-ACTING IM [Suspect]
     Dosage: 300 mg, UNK
     Route: 030
     Dates: start: 20110929
  32. OLANZAPINE LONG-ACTING IM [Suspect]
     Dosage: 300 mg, UNK
     Route: 030
     Dates: start: 20111013
  33. OLANZAPINE LONG-ACTING IM [Suspect]
     Dosage: 300 mg, UNK
     Route: 030
     Dates: start: 20111027
  34. OLANZAPINE LONG-ACTING IM [Suspect]
     Dosage: 300 mg, UNK
     Route: 030
     Dates: start: 20111110
  35. OLANZAPINE LONG-ACTING IM [Suspect]
     Dosage: 300 mg, UNK
     Route: 030
     Dates: start: 20111123
  36. OLANZAPINE LONG-ACTING IM [Suspect]
     Dosage: 300 mg, UNK
     Route: 030
     Dates: start: 20111208
  37. OLANZAPINE LONG-ACTING IM [Suspect]
     Dosage: 300 mg, UNK
     Route: 030
     Dates: start: 20111222
  38. OLANZAPINE LONG-ACTING IM [Suspect]
     Dosage: 300 mg, UNK
     Route: 030
     Dates: start: 20120105
  39. OLANZAPINE LONG-ACTING IM [Suspect]
     Dosage: 300 mg, UNK
     Route: 030
     Dates: start: 20120119
  40. OLANZAPINE LONG-ACTING IM [Suspect]
     Dosage: 300 mg, UNK
     Route: 030
     Dates: start: 20120202
  41. OLANZAPINE LONG-ACTING IM [Suspect]
     Dosage: 300 mg, UNK
     Route: 030
     Dates: start: 20120216
  42. OLANZAPINE LONG-ACTING IM [Suspect]
     Dosage: 300 mg, UNK
     Route: 030
     Dates: start: 20120301
  43. OLANZAPINE LONG-ACTING IM [Suspect]
     Dosage: 300 mg, UNK
     Route: 030
     Dates: start: 20120315
  44. OLANZAPINE LONG-ACTING IM [Suspect]
     Dosage: 300 mg, UNK
     Route: 030
     Dates: start: 20120328
  45. OLANZAPINE LONG-ACTING IM [Suspect]
     Dosage: 300 mg, UNK
     Route: 030
     Dates: start: 20121024
  46. OLANZAPINE LONG-ACTING IM [Suspect]
     Dosage: 300 mg, UNK
     Route: 030
     Dates: start: 20121107
  47. OLANZAPINE LONG-ACTING IM [Suspect]
     Dosage: 300 mg, UNK
     Route: 030
     Dates: start: 20121121
  48. OLANZAPINE LONG-ACTING IM [Suspect]
     Dosage: 300 mg, UNK
     Route: 030
     Dates: start: 20121205
  49. PRISTIQ [Concomitant]
     Dosage: 100 mg, qd
  50. NALTREXONE [Concomitant]
     Dosage: 50 mg, qd
  51. REMERON [Concomitant]
     Dosage: 30 mg, each evening
  52. PRAZOSIN [Concomitant]
     Dosage: 3 mg, each evening
  53. TOPAMAX [Concomitant]
     Dosage: 25 mg, each evening
  54. REQUIP [Concomitant]
     Dosage: 2 mg, each evening

REACTIONS (7)
  - Agitation [Unknown]
  - Confusional state [Unknown]
  - Anxiety [Unknown]
  - Disorientation [Unknown]
  - Irritability [Unknown]
  - Fatigue [Unknown]
  - Social avoidant behaviour [Unknown]
